FAERS Safety Report 14516504 (Version 1)
Quarter: 2018Q1

REPORT INFORMATION
  Report Type: Spontaneous
  Country: US (occurrence: US)
  Receive Date: 20180212
  Receipt Date: 20180212
  Transmission Date: 20180509
  Serious: Yes (Hospitalization, Other)
  Sender: FDA-Public Use
  Company Number: US-VISTAPHARM, INC.-VER201802-000373

PATIENT
  Age: 40 Year
  Sex: Female

DRUGS (1)
  1. HYDROCODONE AND ACETAMINOPHEN [Suspect]
     Active Substance: ACETAMINOPHEN\HYDROCODONE
     Indication: PRODUCT USED FOR UNKNOWN INDICATION

REACTIONS (8)
  - Confusional state [Unknown]
  - Drug-disease interaction [Unknown]
  - Haemolytic anaemia [Unknown]
  - Overdose [Unknown]
  - Vomiting [Unknown]
  - Metabolic acidosis [Unknown]
  - Mental status changes [Unknown]
  - Stupor [Unknown]
